FAERS Safety Report 23530893 (Version 4)
Quarter: 2024Q1

REPORT INFORMATION
  Report Type: Spontaneous
  Country: IT (occurrence: IT)
  Receive Date: 20240216
  Receipt Date: 20240305
  Transmission Date: 20240410
  Serious: Yes (Life-Threatening)
  Sender: FDA-Public Use
  Company Number: None

PATIENT
  Age: 76 Year
  Sex: Male

DRUGS (7)
  1. PRADAXA [Suspect]
     Active Substance: DABIGATRAN ETEXILATE MESYLATE
     Indication: Atrial fibrillation
     Route: 048
     Dates: start: 202202, end: 202401
  2. DOXAZOSIN [Concomitant]
     Active Substance: DOXAZOSIN MESYLATE
     Indication: Product used for unknown indication
  3. RAMIPRIL + IDROCLOROTIAZIDE [Concomitant]
     Indication: Product used for unknown indication
  4. FOLINA [Concomitant]
     Indication: Product used for unknown indication
  5. ACLIDINIUM BROMIDE [Concomitant]
     Active Substance: ACLIDINIUM BROMIDE
     Indication: Chronic obstructive pulmonary disease
  6. ALLOPURINOL [Concomitant]
     Active Substance: ALLOPURINOL
     Indication: Product used for unknown indication
  7. RAMIPRIL [Concomitant]
     Active Substance: RAMIPRIL
     Indication: Product used for unknown indication

REACTIONS (3)
  - Rectal haemorrhage [Recovering/Resolving]
  - Melaena [Recovering/Resolving]
  - Anaemia [Recovering/Resolving]

NARRATIVE: CASE EVENT DATE: 20240101
